FAERS Safety Report 25984873 (Version 2)
Quarter: 2025Q4

REPORT INFORMATION
  Report Type: Spontaneous
  Country: US (occurrence: US)
  Receive Date: 20251031
  Receipt Date: 20251124
  Transmission Date: 20260118
  Serious: Yes (Hospitalization, Other)
  Sender: MYLAN
  Company Number: US-MYLANLABS-2025M1092019

PATIENT

DRUGS (12)
  1. DIAZEPAM [Suspect]
     Active Substance: DIAZEPAM
     Indication: Generalised tonic-clonic seizure
     Dosage: 10 MILLIGRAM, BID
     Dates: start: 1980
  2. DIAZEPAM [Suspect]
     Active Substance: DIAZEPAM
     Dosage: 10 MILLIGRAM, BID
     Route: 048
     Dates: start: 1980
  3. DIAZEPAM [Suspect]
     Active Substance: DIAZEPAM
     Dosage: 10 MILLIGRAM, BID
     Route: 048
     Dates: start: 1980
  4. DIAZEPAM [Suspect]
     Active Substance: DIAZEPAM
     Dosage: 10 MILLIGRAM, BID
     Dates: start: 1980
  5. DILANTIN [Suspect]
     Active Substance: PHENYTOIN
     Indication: Generalised tonic-clonic seizure
     Dosage: 700 MILLIGRAM
  6. DILANTIN [Suspect]
     Active Substance: PHENYTOIN
     Dosage: 700 MILLIGRAM
  7. DILANTIN [Suspect]
     Active Substance: PHENYTOIN
     Dosage: 700 MILLIGRAM
     Route: 042
  8. DILANTIN [Suspect]
     Active Substance: PHENYTOIN
     Dosage: 700 MILLIGRAM
     Route: 042
  9. DILANTIN [Suspect]
     Active Substance: PHENYTOIN
     Dosage: UNK (2-4 TIMES PER DAY)
  10. DILANTIN [Suspect]
     Active Substance: PHENYTOIN
     Dosage: UNK (2-4 TIMES PER DAY)
  11. DILANTIN [Suspect]
     Active Substance: PHENYTOIN
     Dosage: UNK (2-4 TIMES PER DAY)
     Route: 065
  12. DILANTIN [Suspect]
     Active Substance: PHENYTOIN
     Dosage: UNK (2-4 TIMES PER DAY)
     Route: 065

REACTIONS (11)
  - Volvulus [Recovering/Resolving]
  - Mitral valve repair [Unknown]
  - Breast conserving surgery [Unknown]
  - Degenerative bone disease [Unknown]
  - Confusional state [Unknown]
  - Gastrointestinal disorder [Unknown]
  - Dizziness [Unknown]
  - Balance disorder [Unknown]
  - Hypoacusis [Unknown]
  - Loss of personal independence in daily activities [Unknown]
  - Off label use [Unknown]

NARRATIVE: CASE EVENT DATE: 19800101
